FAERS Safety Report 7874913-2 (Version None)
Quarter: 2011Q4

REPORT INFORMATION
  Report Type: 
  Country: None (occurrence: None)
  Receive Date: 20111031
  Receipt Date: 20111020
  Transmission Date: 20120403
  Serious: Yes (Death, Life-Threatening)
  Sender: FDA-Public Use
  Company Number: JP-JNJFOC-20111003654

PATIENT
  Sex: Male

DRUGS (13)
  1. RIFADIN [Suspect]
     Indication: PULMONARY TUBERCULOSIS
     Route: 048
     Dates: start: 20101005, end: 20101008
  2. ETHAMBUTOL HYDROCHLORIDE [Suspect]
     Indication: PULMONARY TUBERCULOSIS
     Route: 048
     Dates: start: 20101022, end: 20101027
  3. ADEROXAL [Suspect]
     Indication: PRODUCT USED FOR UNKNOWN INDICATION
     Route: 048
     Dates: start: 20101007, end: 20101008
  4. TPN [Concomitant]
     Route: 042
     Dates: start: 20101031, end: 20101123
  5. ENSURE [Concomitant]
     Route: 048
     Dates: start: 20101007, end: 20101101
  6. UNKNOWN MEDICATION [Concomitant]
     Route: 042
     Dates: start: 20101014, end: 20101031
  7. ISONIAZID [Suspect]
     Route: 048
     Dates: start: 20101007, end: 20101008
  8. ISONIAZID [Suspect]
     Indication: PULMONARY TUBERCULOSIS
     Route: 041
     Dates: start: 20101005, end: 20101006
  9. LEVOFLOXACIN [Suspect]
     Indication: PULMONARY TUBERCULOSIS
     Route: 048
     Dates: start: 20101022, end: 20101027
  10. PHYSIO [Concomitant]
     Dosage: POTASSIUM PHOSPHATE MONOBASIC, MAGNESIUM CHLORIDE ANHYDROUS)
     Route: 042
     Dates: start: 20101014, end: 20101031
  11. CIPROFLOXACIN [Suspect]
     Indication: PULMONARY TUBERCULOSIS
     Route: 041
     Dates: start: 20101005, end: 20101008
  12. FAMOTIDINE [Suspect]
     Indication: PRODUCT USED FOR UNKNOWN INDICATION
     Route: 048
     Dates: start: 20101007, end: 20101008
  13. TPN [Concomitant]
     Route: 042
     Dates: start: 20101006, end: 20101014

REACTIONS (1)
  - LIVER DISORDER [None]
